FAERS Safety Report 6093830-4 (Version None)
Quarter: 2009Q1

REPORT INFORMATION
  Report Type: 
  Country: None (occurrence: None)
  Receive Date: 20090223
  Receipt Date: 20081121
  Transmission Date: 20090719
  Serious: Yes (Hospitalization)
  Sender: FDA-Public Use
  Company Number: 2008EU002965

PATIENT
  Age: 59 Year
  Sex: Male

DRUGS (2)
  1. TACROLIMUS [Suspect]
     Indication: LIVER TRANSPLANT
     Dosage: UNKNOWN/D; ORAL
     Route: 048
     Dates: start: 20081010
  2. CORTICOSTEROID NOS           (CORTICOSTEROID NOS) [Concomitant]

REACTIONS (1)
  - DISTURBANCE IN ATTENTION [None]
